FAERS Safety Report 10101495 (Version 1)
Quarter: 2014Q2

REPORT INFORMATION
  Report Type: Spontaneous
  Country: GB (occurrence: GB)
  Receive Date: 20140424
  Receipt Date: 20140424
  Transmission Date: 20141212
  Serious: Yes (Hospitalization)
  Sender: FDA-Public Use
  Company Number: GB-PERRIGO-14GB004154

PATIENT
  Age: 27 Year
  Sex: Female
  Weight: 56 kg

DRUGS (1)
  1. ACETAMINOPHEN 650MG ER 544 [Suspect]
     Indication: OVERDOSE
     Dosage: 11 G, SINGLE
     Route: 065

REACTIONS (4)
  - Haemolysis [Recovering/Resolving]
  - Haemolytic anaemia [Recovering/Resolving]
  - Jaundice [Recovering/Resolving]
  - Overdose [Unknown]
